FAERS Safety Report 9032609 (Version 2)
Quarter: 2013Q1

REPORT INFORMATION
  Report Type: Spontaneous
  Country: CL (occurrence: CL)
  Receive Date: 20130122
  Receipt Date: 20130130
  Transmission Date: 20140127
  Serious: Yes (Hospitalization)
  Sender: FDA-Public Use
  Company Number: PHHY2013CL004857

PATIENT
  Age: 72 Year
  Sex: Female
  Weight: 76 kg

DRUGS (8)
  1. TAREG D [Suspect]
     Indication: CEREBROVASCULAR ACCIDENT
     Dosage: 1 DF, (160 MG VALS/25 MG HCT) QD
     Dates: end: 201209
  2. AMLODIPINE [Concomitant]
     Indication: BLOOD PRESSURE
     Dosage: 5 MG, QD
     Route: 048
     Dates: start: 2004
  3. AMLODIPINE [Concomitant]
     Indication: CEREBROVASCULAR ACCIDENT
  4. CARVEDILOL [Concomitant]
     Indication: CEREBROVASCULAR ACCIDENT
     Dosage: 50 MG, QD
     Route: 048
     Dates: start: 2004
  5. AMITRIPTYLINE [Concomitant]
     Indication: SLEEP DISORDER
     Dosage: 12.5 MG, QD
     Route: 048
  6. METFORMIN [Concomitant]
     Indication: DIABETES MELLITUS
     Dosage: UNK
     Route: 048
  7. ATORVASTATIN [Concomitant]
     Dosage: UNK
     Route: 048
  8. INSULIN [Concomitant]
     Indication: DIABETES MELLITUS
     Dosage: UNK UKN, UNK
     Route: 058

REACTIONS (8)
  - Hip fracture [Not Recovered/Not Resolved]
  - Fall [Unknown]
  - Urinary tract infection [Recovering/Resolving]
  - Polyuria [Unknown]
  - Urine odour abnormal [Unknown]
  - Haemoglobin decreased [Unknown]
  - Haematocrit decreased [Unknown]
  - Post procedural infection [Recovering/Resolving]
